FAERS Safety Report 5310917-1 (Version None)
Quarter: 2007Q2

REPORT INFORMATION
  Report Type: 
  Country: None (occurrence: None)
  Receive Date: 20070430
  Receipt Date: 20070419
  Transmission Date: 20071010
  Serious: Yes (Hospitalization, Other)
  Sender: FDA-Public Use
  Company Number: GB-JNJFOC-20070404536

PATIENT
  Sex: Female
  Weight: 64 kg

DRUGS (6)
  1. REMICADE [Suspect]
     Indication: RHEUMATOID ARTHRITIS
  2. PREDNISOLONE [Concomitant]
  3. DICLOFENAC [Concomitant]
  4. FOSAMAX [Concomitant]
  5. LOSEC [Concomitant]
  6. ZOLPIDEM [Concomitant]

REACTIONS (1)
  - BOWEN'S DISEASE [None]
